FAERS Safety Report 13752521 (Version 1)
Quarter: 2017Q3

REPORT INFORMATION
  Report Type: Report from Study
  Country: US (occurrence: US)
  Receive Date: 20170713
  Receipt Date: 20170713
  Transmission Date: 20171127
  Serious: Yes (Other)
  Sender: FDA-Public Use
  Company Number: US-JNJFOC-20170706763

PATIENT
  Sex: Female

DRUGS (1)
  1. REMICADE [Suspect]
     Active Substance: INFLIXIMAB
     Indication: PRODUCT USED FOR UNKNOWN INDICATION
     Dosage: ON INFLIXIMAB FOR ABOUT A YEAR.
     Route: 042
     Dates: end: 201704

REACTIONS (2)
  - Systemic lupus erythematosus [Not Recovered/Not Resolved]
  - Pericardial effusion [Recovered/Resolved]
